FAERS Safety Report 4383844-4 (Version None)
Quarter: 2004Q2

REPORT INFORMATION
  Report Type: 
  Country: None (occurrence: None)
  Receive Date: 20040615
  Receipt Date: 20030626
  Transmission Date: 20050107
  Serious: Yes (Hospitalization)
  Sender: FDA-Public Use
  Company Number: 2003US005357

PATIENT
  Age: 26 Year
  Sex: Female
  Weight: 99.4 kg

DRUGS (1)
  1. PROGRAF [Suspect]
     Indication: HEART TRANSPLANT
     Dosage: 9 MG, BID, ORAL
     Route: 048
     Dates: start: 19970203

REACTIONS (3)
  - DRUG LEVEL INCREASED [None]
  - HEADACHE [None]
  - INTENTIONAL OVERDOSE [None]
